FAERS Safety Report 5156284-8 (Version None)
Quarter: 2006Q4

REPORT INFORMATION
  Report Type: 
  Country: None (occurrence: None)
  Receive Date: 20061122
  Receipt Date: 20060911
  Transmission Date: 20070319
  Serious: Yes (Hospitalization)
  Sender: FDA-Public Use
  Company Number: US-GLAXOSMITHKLINE-A0619902A

PATIENT
  Age: 86 Year
  Sex: Female
  Weight: 59.1 kg

DRUGS (10)
  1. VALTREX [Suspect]
     Indication: HERPES SIMPLEX
     Dosage: 4500MG PER DAY
     Route: 048
  2. ATARAX [Concomitant]
     Indication: HERPES ZOSTER
  3. LORTAB [Concomitant]
     Indication: HERPES ZOSTER
  4. COUMADIN [Concomitant]
  5. TOPROL-XL [Concomitant]
  6. EVISTA [Concomitant]
  7. CALCIUM [Concomitant]
  8. INDAPAMIDE [Concomitant]
  9. SODIUM BICARBONATE [Concomitant]
  10. REMEGEL [Concomitant]

REACTIONS (2)
  - HALLUCINATION [None]
  - OVERDOSE [None]
